FAERS Safety Report 6998518-0 (Version None)
Quarter: 2010Q3

REPORT INFORMATION
  Report Type: 
  Country: None (occurrence: None)
  Receive Date: 20100920
  Receipt Date: 20091007
  Transmission Date: 20110219
  Serious: No
  Sender: FDA-Public Use
  Company Number: US-ASTRAZENECA-2009UW13427

PATIENT
  Age: 317 Month
  Sex: Female
  Weight: 117.9 kg

DRUGS (7)
  1. SEROQUEL [Suspect]
     Indication: ANXIETY
     Dosage: 10 MG TO 25 MG
     Route: 048
     Dates: start: 20050701, end: 20080901
  2. SEROQUEL [Suspect]
     Indication: DEPRESSION
     Dosage: 10 MG TO 25 MG
     Route: 048
     Dates: start: 20050701, end: 20080901
  3. SEROQUEL [Suspect]
     Indication: BIPOLAR DISORDER
     Dosage: 10 MG TO 25 MG
     Route: 048
     Dates: start: 20050701, end: 20080901
  4. LEXAPRO [Concomitant]
     Dates: start: 20050101, end: 20080101
  5. CELEXA [Concomitant]
     Dates: start: 20090301
  6. KLONOPIN [Concomitant]
     Dates: start: 20090301
  7. AMBIEN [Concomitant]
     Dates: start: 20090301

REACTIONS (6)
  - ASTHMA [None]
  - BLOOD CHOLESTEROL INCREASED [None]
  - DEHYDRATION [None]
  - GASTRIC DISORDER [None]
  - OBESITY [None]
  - TYPE 2 DIABETES MELLITUS [None]
